FAERS Safety Report 20467375 (Version 1)
Quarter: 2022Q1

REPORT INFORMATION
  Report Type: Report from Study
  Country: US (occurrence: US)
  Receive Date: 20220214
  Receipt Date: 20220214
  Transmission Date: 20220424
  Serious: No
  Sender: FDA-Public Use
  Company Number: US-DOVA PHARMACEUTICALS INC.-DOV-000970

PATIENT
  Sex: Male

DRUGS (2)
  1. DOPTELET [Suspect]
     Active Substance: AVATROMBOPAG MALEATE
     Indication: Thrombocytopenia
     Dosage: 20 MILLIGRAM, QD
     Route: 048
     Dates: start: 20210121
  2. DOPTELET [Suspect]
     Active Substance: AVATROMBOPAG MALEATE
     Dosage: 20 MILLIGRAM, THREE TIMES A WEEK
     Route: 048

REACTIONS (1)
  - Drug ineffective [Unknown]
